FAERS Safety Report 4690675-4 (Version None)
Quarter: 2005Q2

REPORT INFORMATION
  Report Type: 
  Country: None (occurrence: None)
  Receive Date: 20050614
  Receipt Date: 20050614
  Transmission Date: 20051028
  Serious: Yes (Hospitalization)
  Sender: FDA-Public Use
  Company Number: None

PATIENT
  Age: 73 Year
  Sex: Female
  Weight: 65 kg

DRUGS (8)
  1. DIGOXIN [Suspect]
     Indication: CARDIAC FAILURE CONGESTIVE
     Dosage: 125 ML QD ORAL
     Route: 048
  2. PLAVIX [Concomitant]
  3. LOPRESSOR [Concomitant]
  4. SYNTHROID [Concomitant]
  5. SINGULAIR [Concomitant]
  6. LASIX [Concomitant]
  7. ALBUTEROL [Concomitant]
  8. REGLAN [Concomitant]

REACTIONS (3)
  - ELECTROCARDIOGRAM T WAVE ABNORMAL [None]
  - HYPOTENSION [None]
  - LABORATORY TEST ABNORMAL [None]
